FAERS Safety Report 23311703 (Version 1)
Quarter: 2023Q4

REPORT INFORMATION
  Report Type: Spontaneous
  Country: GB (occurrence: GB)
  Receive Date: 20231219
  Receipt Date: 20231219
  Transmission Date: 20240110
  Serious: Yes (Other)
  Sender: FDA-Public Use
  Company Number: GB-ADVANZ PHARMA-202311011135

PATIENT
  Sex: Male

DRUGS (2)
  1. LANREOTIDE ACETATE [Suspect]
     Active Substance: LANREOTIDE ACETATE
     Indication: Acromegaly
     Route: 065
  2. LANREOTIDE ACETATE [Suspect]
     Active Substance: LANREOTIDE ACETATE
     Indication: Gigantism
     Route: 058

REACTIONS (4)
  - Metastases to liver [Unknown]
  - Spinal disorder [Recovering/Resolving]
  - Pain in extremity [Recovering/Resolving]
  - Sensory disturbance [Recovering/Resolving]
